FAERS Safety Report 10343354 (Version 3)
Quarter: 2014Q3

REPORT INFORMATION
  Report Type: Spontaneous
  Country: JP (occurrence: JP)
  Receive Date: 20140725
  Receipt Date: 20140904
  Transmission Date: 20150326
  Serious: Yes (Hospitalization, Other)
  Sender: FDA-Public Use
  Company Number: JP-009507513-1405JPN005301

PATIENT
  Age: 65 Year
  Sex: Male
  Weight: 63 kg

DRUGS (4)
  1. TRAMCET [Concomitant]
     Active Substance: ACETAMINOPHEN\TRAMADOL
     Indication: OSTEOARTHRITIS
     Dosage: 1 DF, QD
     Route: 048
     Dates: start: 20130703, end: 20131002
  2. EPZICOM [Concomitant]
     Active Substance: ABACAVIR SULFATE\LAMIVUDINE
     Indication: HIV INFECTION
     Dosage: 1 TABLET, QD
     Route: 048
     Dates: start: 20111010
  3. ISENTRESS [Suspect]
     Active Substance: RALTEGRAVIR POTASSIUM
     Indication: HIV INFECTION
     Dosage: 400 MG, BID
     Route: 048
     Dates: start: 20091006
  4. CELECOX [Concomitant]
     Active Substance: CELECOXIB
     Indication: OSTEOARTHRITIS
     Dosage: 100 MG, BID
     Route: 048
     Dates: start: 20130522, end: 20130702

REACTIONS (5)
  - Nephrotic syndrome [Recovering/Resolving]
  - Osteoarthritis [Unknown]
  - Glomerulonephritis membranous [Recovering/Resolving]
  - Gastrooesophageal reflux disease [Unknown]
  - Focal segmental glomerulosclerosis [Recovering/Resolving]

NARRATIVE: CASE EVENT DATE: 2013
